FAERS Safety Report 11252748 (Version 2)
Quarter: 2015Q3

REPORT INFORMATION
  Report Type: Spontaneous
  Country: DE (occurrence: DE)
  Receive Date: 20150708
  Receipt Date: 20150720
  Transmission Date: 20151125
  Serious: Yes (Hospitalization)
  Sender: FDA-Public Use
  Company Number: DE-GE HEALTHCARE MEDICAL DIAGNOSTICS-VISP-PR-1507S-0249

PATIENT
  Age: 79 Year
  Sex: Male

DRUGS (2)
  1. VISIPAQUE [Suspect]
     Active Substance: IODIXANOL
     Indication: DIAGNOSTIC PROCEDURE
  2. VISIPAQUE [Suspect]
     Active Substance: IODIXANOL
     Indication: RENAL CYST
     Route: 042
     Dates: start: 20150629, end: 20150629

REACTIONS (6)
  - Cold sweat [Recovered/Resolved]
  - Urinary incontinence [Recovered/Resolved]
  - Swelling face [Recovered/Resolved]
  - Feeling cold [Recovered/Resolved]
  - Restlessness [Recovered/Resolved]
  - Generalised erythema [Recovered/Resolved]

NARRATIVE: CASE EVENT DATE: 20150629
